FAERS Safety Report 9371838 (Version 2)
Quarter: 2013Q3

REPORT INFORMATION
  Report Type: Spontaneous
  Country: DE (occurrence: None)
  Receive Date: 20130619
  Receipt Date: 20130715
  Transmission Date: 20140515
  Serious: Yes (Life-Threatening)
  Sender: FDA-Public Use
  Company Number: 2013036511

PATIENT
  Age: 3 Year
  Sex: Female

DRUGS (1)
  1. PRIVIGEN [Suspect]
     Indication: KAWASAKI^S DISEASE
     Dosage: 100 MG/ML; 2 G/KG
     Dates: start: 20130609, end: 20130609

REACTIONS (6)
  - Anaphylactic shock [None]
  - Off label use [None]
  - Blood creatine phosphokinase increased [None]
  - Blood creatine phosphokinase MB increased [None]
  - Blood lactate dehydrogenase increased [None]
  - Aspartate aminotransferase increased [None]
